FAERS Safety Report 11785672 (Version 1)
Quarter: 2015Q4

REPORT INFORMATION
  Report Type: Spontaneous
  Country: None (occurrence: GB)
  Receive Date: 20151130
  Receipt Date: 20151130
  Transmission Date: 20160305
  Serious: Yes (Hospitalization)
  Sender: FDA-Public Use
  Company Number: GB-MEDAC PHARMA, INC.-1044751

PATIENT
  Sex: Female

DRUGS (2)
  1. METOJECT PEN [Suspect]
     Active Substance: METHOTREXATE
  2. ENBREL [Suspect]
     Active Substance: ETANERCEPT

REACTIONS (2)
  - Malaise [Unknown]
  - Hospitalisation [Unknown]
